FAERS Safety Report 9894847 (Version 1)
Quarter: 2014Q1

REPORT INFORMATION
  Report Type: Spontaneous
  Country: US (occurrence: US)
  Receive Date: 20140213
  Receipt Date: 20140213
  Transmission Date: 20141002
  Serious: Yes (Other)
  Sender: FDA-Public Use
  Company Number: US-SA-2014SA016891

PATIENT
  Age: 42 Year
  Sex: Female

DRUGS (1)
  1. ARAVA [Suspect]
     Indication: INFLAMMATION
     Route: 065

REACTIONS (3)
  - Arthritis [Recovered/Resolved]
  - Pain [Recovered/Resolved]
  - Mobility decreased [Recovered/Resolved]
